FAERS Safety Report 18080909 (Version 3)
Quarter: 2020Q3

REPORT INFORMATION
  Report Type: Spontaneous
  Country: JP (occurrence: JP)
  Receive Date: 20200728
  Receipt Date: 20200826
  Transmission Date: 20201103
  Serious: Yes (Death, Other)
  Sender: FDA-Public Use
  Company Number: JP-ACTELION-A-CH2020-207368

PATIENT
  Age: 70 Year
  Sex: Female

DRUGS (11)
  1. CEFTRIAXONE NA [Concomitant]
     Active Substance: CEFTRIAXONE
  2. FUROSEMIDE. [Concomitant]
     Active Substance: FUROSEMIDE
  3. PRECEDEX [Concomitant]
     Active Substance: DEXMEDETOMIDINE HYDROCHLORIDE
  4. MIDAZOLAM. [Concomitant]
     Active Substance: MIDAZOLAM
  5. INOVAN [DOPAMINE HYDROCHLORIDE] [Concomitant]
  6. NORADRENALINE (NORPINEPHRINE) [Concomitant]
     Active Substance: NOREPINEPHRINE
  7. OPSUMIT [Suspect]
     Active Substance: MACITENTAN
     Indication: PULMONARY ARTERIAL HYPERTENSION
     Dosage: UNK
     Route: 048
     Dates: start: 20200706, end: 20200715
  8. EPOPROSTENOL ACT [Suspect]
     Active Substance: EPOPROSTENOL
     Indication: PULMONARY ARTERIAL HYPERTENSION
     Dosage: UNK
     Route: 042
     Dates: start: 202007, end: 202007
  9. TAZOPIPE [Concomitant]
     Active Substance: PIPERACILLIN SODIUM\TAZOBACTAM SODIUM
  10. ADCIRCA [Suspect]
     Active Substance: TADALAFIL
     Indication: PULMONARY ARTERIAL HYPERTENSION
     Dosage: 20 MG, QD
     Route: 048
     Dates: start: 20200608, end: 20200615
  11. DOBUPUM [Concomitant]
     Active Substance: DOBUTAMINE HYDROCHLORIDE

REACTIONS (4)
  - Blood pressure decreased [Unknown]
  - Pneumonia [Fatal]
  - Respiratory failure [Unknown]
  - Septic shock [Fatal]

NARRATIVE: CASE EVENT DATE: 202007
